FAERS Safety Report 16681153 (Version 1)
Quarter: 2019Q3

REPORT INFORMATION
  Report Type: Spontaneous
  Country: GB (occurrence: GB)
  Receive Date: 20190808
  Receipt Date: 20190808
  Transmission Date: 20191004
  Serious: Yes (Other)
  Sender: FDA-Public Use
  Company Number: GB-TEVA-2019-GB-1088888

PATIENT
  Age: 17 Year
  Sex: Male
  Weight: 35 kg

DRUGS (1)
  1. DOXYCYCLINE. [Suspect]
     Active Substance: DOXYCYCLINE
     Dosage: TWO NOW THEN ONE DAILY, 100 MG
     Route: 065
     Dates: start: 20190430, end: 20190507

REACTIONS (2)
  - Headache [Unknown]
  - Malaise [Recovered/Resolved]

NARRATIVE: CASE EVENT DATE: 20190503
